FAERS Safety Report 23305245 (Version 3)
Quarter: 2024Q1

REPORT INFORMATION
  Report Type: Spontaneous
  Country: US (occurrence: None)
  Receive Date: 20231218
  Receipt Date: 20240222
  Transmission Date: 20240410
  Serious: Yes (Hospitalization, Other)
  Sender: FDA-Public Use
  Company Number: US-ROCHE-3476016

PATIENT
  Sex: Female
  Weight: 54.48 kg

DRUGS (7)
  1. ACTEMRA [Suspect]
     Active Substance: TOCILIZUMAB
     Indication: Giant cell arteritis
     Dosage: HALF OF LOW DOSE
     Route: 042
     Dates: start: 20231129
  2. ACTEMRA [Suspect]
     Active Substance: TOCILIZUMAB
     Indication: Rheumatoid arthritis
  3. PREDNISONE [Concomitant]
     Active Substance: PREDNISONE
  4. ORENCIA [Concomitant]
     Active Substance: ABATACEPT
  5. HUMIRA [Concomitant]
     Active Substance: ADALIMUMAB
  6. ENBREL [Concomitant]
     Active Substance: ETANERCEPT
  7. PENICILLIN [Concomitant]
     Active Substance: PENICILLIN

REACTIONS (22)
  - Heart rate increased [Unknown]
  - Malaise [Unknown]
  - Eye haemorrhage [Unknown]
  - Dizziness [Unknown]
  - Ill-defined disorder [Unknown]
  - Skin disorder [Not Recovered/Not Resolved]
  - Pain [Unknown]
  - Pain in jaw [Unknown]
  - Blood pressure increased [Unknown]
  - Head discomfort [Not Recovered/Not Resolved]
  - Confusional state [Not Recovered/Not Resolved]
  - Candida infection [Not Recovered/Not Resolved]
  - Nasal disorder [Unknown]
  - Swelling face [Unknown]
  - Erythema [Unknown]
  - Cough [Unknown]
  - Sinus congestion [Unknown]
  - Weight increased [Unknown]
  - Memory impairment [Not Recovered/Not Resolved]
  - Headache [Unknown]
  - Insomnia [Unknown]
  - Disease progression [Unknown]

NARRATIVE: CASE EVENT DATE: 20231129
